FAERS Safety Report 6749730-7 (Version None)
Quarter: 2010Q2

REPORT INFORMATION
  Report Type: 
  Country: None (occurrence: None)
  Receive Date: 20100527
  Receipt Date: 20100527
  Transmission Date: 20101027
  Serious: Yes (Other)
  Sender: FDA-Public Use
  Company Number: None

PATIENT
  Sex: Female
  Weight: 63.5036 kg

DRUGS (1)
  1. ACETAMINOPHEN W/ CODEINE [Suspect]
     Indication: MIGRAINE
     Dosage: 1 TABLET ONCE PO
     Route: 048
     Dates: start: 20100410, end: 20100411

REACTIONS (9)
  - CHILLS [None]
  - HALLUCINATION [None]
  - HALLUCINATION, OLFACTORY [None]
  - HYPERHIDROSIS [None]
  - INSOMNIA [None]
  - NAUSEA [None]
  - PRODUCT QUALITY ISSUE [None]
  - TREMOR [None]
  - VOMITING [None]
